FAERS Safety Report 21024245 (Version 3)
Quarter: 2022Q3

REPORT INFORMATION
  Report Type: Spontaneous
  Country: US (occurrence: None)
  Receive Date: 20220629
  Receipt Date: 20220721
  Transmission Date: 20221027
  Serious: Yes (Other)
  Sender: FDA-Public Use
  Company Number: 2022A231172

PATIENT
  Age: 25124 Day
  Sex: Male
  Weight: 113.4 kg

DRUGS (37)
  1. FARXIGA [Suspect]
     Active Substance: DAPAGLIFLOZIN PROPANEDIOL
     Indication: Type 2 diabetes mellitus
     Route: 048
     Dates: start: 20160816, end: 20190129
  2. ACETAMINOPHEN [Concomitant]
     Active Substance: ACETAMINOPHEN
     Indication: Pain
  3. ASPIRIN [Concomitant]
     Active Substance: ASPIRIN
     Indication: Cardiac disorder
  4. ASCORBIC ACID [Concomitant]
     Active Substance: ASCORBIC ACID
  5. AMOXIXCILLIN [Concomitant]
  6. ATORVASTATIN [Concomitant]
     Active Substance: ATORVASTATIN
  7. GLIMEPIRIDE [Concomitant]
     Active Substance: GLIMEPIRIDE
     Dates: start: 2018
  8. LOSARTAN [Concomitant]
     Active Substance: LOSARTAN
     Dates: start: 2019
  9. METFORMIN [Concomitant]
     Active Substance: METFORMIN HYDROCHLORIDE
     Dates: start: 2018
  10. OMEGA 3 [Concomitant]
     Active Substance: CAPSAICIN
  11. PIOGLITAZONE [Concomitant]
     Active Substance: PIOGLITAZONE
  12. TIZANIDINE [Concomitant]
     Active Substance: TIZANIDINE
  13. TRULICITY [Concomitant]
     Active Substance: DULAGLUTIDE
  14. CEFEPIME [Concomitant]
     Active Substance: CEFEPIME HYDROCHLORIDE
  15. COLACE [Concomitant]
     Active Substance: DOCUSATE SODIUM
  16. CHOLECALCIFEROL [Concomitant]
     Active Substance: CHOLECALCIFEROL
  17. HEPARIN [Concomitant]
     Active Substance: HEPARIN SODIUM
     Dates: start: 2018
  18. HYDROCHLOROTHIAZIDE [Concomitant]
     Active Substance: HYDROCHLOROTHIAZIDE
  19. ADVIL OTC [Concomitant]
  20. DILAUDID [Concomitant]
     Active Substance: HYDROMORPHONE HYDROCHLORIDE
  21. DOCUSET SODIUM [Concomitant]
  22. FLAGYL [Concomitant]
     Active Substance: METRONIDAZOLE\METRONIDAZOLE HYDROCHLORIDE
     Dates: start: 2018
  23. FLOMAX [Concomitant]
     Active Substance: TAMSULOSIN HYDROCHLORIDE
     Dates: start: 2018
  24. LIPITOR [Concomitant]
     Active Substance: ATORVASTATIN CALCIUM
     Dates: start: 2018
  25. LOVAZA [Concomitant]
     Active Substance: OMEGA-3-ACID ETHYL ESTERS
     Dates: start: 2018, end: 2019
  26. OXYCODONE [Concomitant]
     Active Substance: OXYCODONE
     Dates: start: 2018
  27. TYLENOL [Concomitant]
     Active Substance: ACETAMINOPHEN
     Dates: start: 2018
  28. VENCOMYCIN [Concomitant]
     Dates: start: 2018
  29. VITAMIN B12 [Concomitant]
     Active Substance: CYANOCOBALAMIN
  30. SENNA [Concomitant]
     Active Substance: SENNA LEAF\SENNOSIDES\SENNOSIDES A AND B
     Dates: start: 20181227
  31. VITAMIN D3 [Concomitant]
     Active Substance: CHOLECALCIFEROL
  32. VICTOZA [Concomitant]
     Active Substance: LIRAGLUTIDE
  33. AMARYL [Concomitant]
     Active Substance: GLIMEPIRIDE
  34. CARVEDILOL [Concomitant]
     Active Substance: CARVEDILOL
  35. DOXAZOSIN MESYLATE [Concomitant]
     Active Substance: DOXAZOSIN MESYLATE
  36. REPAGLINIDE [Concomitant]
     Active Substance: REPAGLINIDE
  37. KERENDIA [Concomitant]
     Active Substance: FINERENONE

REACTIONS (6)
  - Fournier^s gangrene [Unknown]
  - Perirectal abscess [Unknown]
  - Genital abscess [Unknown]
  - Anal abscess [Unknown]
  - Rectal abscess [Unknown]
  - Perineal abscess [Unknown]

NARRATIVE: CASE EVENT DATE: 20181116
